FAERS Safety Report 8814403 (Version 1)
Quarter: 2012Q4

REPORT INFORMATION
  Report Type: 
  Country: US (occurrence: US)
  Receive Date: 20120928
  Receipt Date: 20120928
  Transmission Date: 20130627
  Serious: Yes (Death)
  Sender: FDA-Public Use
  Company Number: PHEH2012US018797

PATIENT
  Age: 69 Year
  Sex: Female

DRUGS (5)
  1. EXJADE [Suspect]
     Indication: IRON OVERLOAD
     Dosage: 1000 mg, every day
     Route: 048
  2. LEVOFLOXACIN [Concomitant]
  3. PREDNISONE [Concomitant]
  4. DIFLUCAN [Concomitant]
  5. AMICAR [Concomitant]

REACTIONS (1)
  - Death [Fatal]
